FAERS Safety Report 23896150 (Version 1)
Quarter: 2024Q2

REPORT INFORMATION
  Report Type: Spontaneous
  Country: GR (occurrence: GR)
  Receive Date: 20240524
  Receipt Date: 20240524
  Transmission Date: 20240716
  Serious: Yes (Other)
  Sender: FDA-Public Use
  Company Number: GR-AMGEN-GRCSP2024098200

PATIENT

DRUGS (2)
  1. BEVACIZUMAB [Suspect]
     Active Substance: BEVACIZUMAB
     Indication: Hepatocellular carcinoma
     Dosage: UNK
     Route: 065
  2. ATEZOLIZUMAB [Suspect]
     Active Substance: ATEZOLIZUMAB
     Indication: Hepatocellular carcinoma
     Dosage: UNK
     Route: 065

REACTIONS (23)
  - Hypothyroidism [Unknown]
  - Renal failure [Unknown]
  - Colitis [Unknown]
  - Haemophagocytic lymphohistiocytosis [Unknown]
  - Acute kidney injury [Unknown]
  - Hepatic cirrhosis [Unknown]
  - Liver abscess [Unknown]
  - Adverse event [Unknown]
  - Thrombocytopenia [Unknown]
  - Gastrointestinal haemorrhage [Unknown]
  - Hepatocellular carcinoma [Unknown]
  - Inflammatory pseudotumour [Unknown]
  - Albuminuria [Unknown]
  - Pericardial disease [Unknown]
  - Skin disorder [Unknown]
  - Proteinuria [Unknown]
  - Hypertension [Unknown]
  - Haemorrhage [Unknown]
  - Diarrhoea [Unknown]
  - Thyroid disorder [Unknown]
  - Pruritus [Unknown]
  - Flushing [Unknown]
  - Off label use [Unknown]
